FAERS Safety Report 6878860-4 (Version None)
Quarter: 2010Q3

REPORT INFORMATION
  Report Type: 
  Country: None (occurrence: None)
  Receive Date: 20100728
  Receipt Date: 20100719
  Transmission Date: 20110219
  Serious: Yes (Hospitalization)
  Sender: FDA-Public Use
  Company Number: PHHO2010US10995

PATIENT
  Sex: Male
  Weight: 80.272 kg

DRUGS (9)
  1. AFINITOR [Suspect]
     Indication: METASTATIC MALIGNANT MELANOMA
     Dosage: 5 MG
     Route: 048
     Dates: start: 20100709
  2. PACLITAXEL [Suspect]
     Indication: METASTATIC MALIGNANT MELANOMA
     Dosage: 345 MG
     Route: 042
     Dates: start: 20100709
  3. CARBOPLATIN [Suspect]
     Indication: METASTATIC MALIGNANT MELANOMA
     Dosage: 545 MG
     Route: 042
     Dates: start: 20100709
  4. ASPIRIN [Concomitant]
     Indication: PROPHYLAXIS
  5. LOTREL [Concomitant]
     Indication: HYPERTENSION
  6. PRILOSEC [Concomitant]
     Indication: REFLUX OESOPHAGITIS
  7. ZOFRAN [Concomitant]
     Indication: NAUSEA
  8. PHENERGAN [Concomitant]
     Indication: NAUSEA
  9. DEXAMETHASONE [Concomitant]
     Indication: PROPHYLACTIC CHEMOTHERAPY

REACTIONS (5)
  - ASTHENIA [None]
  - DIZZINESS [None]
  - FEBRILE NEUTROPENIA [None]
  - PYREXIA [None]
  - SYNCOPE [None]
